FAERS Safety Report 5162760-4 (Version None)
Quarter: 2006Q4

REPORT INFORMATION
  Report Type: 
  Country: None (occurrence: None)
  Receive Date: 20061121
  Receipt Date: 20061114
  Transmission Date: 20070319
  Serious: Yes (Hospitalization)
  Sender: FDA-Public Use
  Company Number: SU-2006-005608

PATIENT
  Age: 58 Year
  Sex: Female

DRUGS (4)
  1. BENICAR HCT [Suspect]
     Indication: DRUG USE FOR UNKNOWN INDICATION
     Dosage: 40.25 MG QD PO
     Route: 048
     Dates: end: 20060901
  2. LEVAQUIN [Concomitant]
  3. ADVAIR DISKUS 100/50 [Concomitant]
  4. PRILOSEC [Concomitant]

REACTIONS (1)
  - HEPATITIS [None]
